FAERS Safety Report 5967666-6 (Version None)
Quarter: 2008Q4

REPORT INFORMATION
  Report Type: 
  Country: None (occurrence: None)
  Receive Date: 20081126
  Receipt Date: 20081118
  Transmission Date: 20090506
  Serious: Yes (Other)
  Sender: FDA-Public Use
  Company Number: PHHY2008JP21687

PATIENT
  Age: 46 Year
  Sex: Male

DRUGS (2)
  1. NEORAL [Suspect]
     Indication: CORD BLOOD TRANSPLANT THERAPY
  2. SANDIMMUNE [Suspect]

REACTIONS (8)
  - ACUTE GRAFT VERSUS HOST DISEASE IN SKIN [None]
  - CYTOMEGALOVIRUS INFECTION [None]
  - GLOMERULOSCLEROSIS [None]
  - KIDNEY FIBROSIS [None]
  - NEPHROPATHY TOXIC [None]
  - RADIATION INJURY [None]
  - RENAL TUBULAR ATROPHY [None]
  - SEPSIS [None]
